FAERS Safety Report 23977137 (Version 1)
Quarter: 2024Q2

REPORT INFORMATION
  Report Type: Spontaneous
  Country: US (occurrence: US)
  Receive Date: 20240614
  Receipt Date: 20240614
  Transmission Date: 20240716
  Serious: Yes (Other)
  Sender: FDA-Public Use
  Company Number: US-The Proactiv LLC-2158144

PATIENT
  Sex: Female

DRUGS (1)
  1. PROACTIV SOLUTION RENEWING CLEANSER [Suspect]
     Active Substance: BENZOYL PEROXIDE
     Route: 061

REACTIONS (1)
  - Acute lymphocytic leukaemia [Unknown]

NARRATIVE: CASE EVENT DATE: 20240225
